FAERS Safety Report 7295721-X (Version None)
Quarter: 2011Q1

REPORT INFORMATION
  Report Type: 
  Country: None (occurrence: None)
  Receive Date: 20110216
  Receipt Date: 20101222
  Transmission Date: 20110831
  Serious: No
  Sender: FDA-Public Use
  Company Number: US-ABBOTT-10P-163-0693347-00

PATIENT
  Sex: Female

DRUGS (2)
  1. UNKNOWN MEDICATION [Concomitant]
     Indication: BLOOD PRESSURE
     Route: 048
  2. SIMCOR [Suspect]
     Indication: DYSLIPIDAEMIA

REACTIONS (2)
  - ERYTHEMA [None]
  - DIZZINESS [None]
